FAERS Safety Report 16205298 (Version 2)
Quarter: 2019Q4

REPORT INFORMATION
  Report Type: Spontaneous
  Country: US (occurrence: US)
  Receive Date: 20190417
  Receipt Date: 20191021
  Transmission Date: 20200122
  Serious: No
  Sender: FDA-Public Use
  Company Number: US-BIOGEN-2019BI00724868

PATIENT
  Sex: Female

DRUGS (1)
  1. TECFIDERA [Suspect]
     Active Substance: DIMETHYL FUMARATE
     Indication: MULTIPLE SCLEROSIS
     Route: 065

REACTIONS (8)
  - Dry mouth [Unknown]
  - Abdominal discomfort [Unknown]
  - Flushing [Unknown]
  - Pruritus [Unknown]
  - Chills [Unknown]
  - Hot flush [Unknown]
  - Feeling abnormal [Unknown]
  - Diarrhoea [Unknown]
